FAERS Safety Report 24023693 (Version 3)
Quarter: 2024Q3

REPORT INFORMATION
  Report Type: Report from Study
  Country: MX (occurrence: MX)
  Receive Date: 20240627
  Receipt Date: 20240710
  Transmission Date: 20241017
  Serious: No
  Sender: ROCHE
  Company Number: MX-ROCHE-3432521

PATIENT
  Age: 69 Year
  Sex: Female

DRUGS (1)
  1. ALECENSA [Suspect]
     Active Substance: ALECTINIB HYDROCHLORIDE
     Indication: Lung neoplasm malignant
     Route: 048
     Dates: start: 20220321

REACTIONS (7)
  - Depression [Unknown]
  - Abdominal discomfort [Unknown]
  - Memory impairment [Unknown]
  - Communication disorder [Unknown]
  - Impulsive behaviour [Unknown]
  - Fatigue [Unknown]
  - Laziness [Unknown]
